FAERS Safety Report 15657143 (Version 1)
Quarter: 2018Q4

REPORT INFORMATION
  Report Type: Spontaneous
  Country: US (occurrence: US)
  Receive Date: 20181126
  Receipt Date: 20181126
  Transmission Date: 20190205
  Serious: Yes (Other)
  Sender: FDA-Public Use
  Company Number: US-IMPAX LABORATORIES, LLC-2018-IPXL-03844

PATIENT
  Sex: Female
  Weight: 91 kg

DRUGS (3)
  1. FLUDROCORTISONE ACETATE. [Suspect]
     Active Substance: FLUDROCORTISONE ACETATE
     Indication: PRODUCT USE IN UNAPPROVED INDICATION
  2. FLUDROCORTISONE ACETATE. [Suspect]
     Active Substance: FLUDROCORTISONE ACETATE
     Indication: ORTHOSTATIC INTOLERANCE
     Dosage: 0.1 MILLIGRAM, 1 TABLET, ONCE DAILY,
     Route: 048
     Dates: start: 2018
  3. TOPAMAX [Concomitant]
     Active Substance: TOPIRAMATE
     Indication: MIGRAINE
     Dosage: 50 MILLIGRAM, 2 /DAY
     Route: 048

REACTIONS (6)
  - Throat tightness [Recovered/Resolved]
  - Eye swelling [Recovered/Resolved]
  - Product substitution issue [Unknown]
  - Swelling face [Recovered/Resolved]
  - Product use in unapproved indication [Unknown]
  - Dyspnoea [Recovered/Resolved]

NARRATIVE: CASE EVENT DATE: 2018
